FAERS Safety Report 13096285 (Version 1)
Quarter: 2017Q1

REPORT INFORMATION
  Report Type: Spontaneous
  Country: US (occurrence: US)
  Receive Date: 20170109
  Receipt Date: 20170109
  Transmission Date: 20170428
  Serious: Yes (Other)
  Sender: FDA-Public Use
  Company Number: US-JNJFOC-20161214840

PATIENT
  Age: 77 Year
  Sex: Male
  Weight: 70 kg

DRUGS (2)
  1. DARZALEX [Suspect]
     Active Substance: DARATUMUMAB
     Indication: PLASMA CELL MYELOMA
     Route: 042
     Dates: start: 20161215
  2. BORTEZOMIB [Concomitant]
     Active Substance: BORTEZOMIB
     Route: 058

REACTIONS (6)
  - Throat irritation [Unknown]
  - Muscle twitching [Unknown]
  - Cough [Unknown]
  - Hypertension [Unknown]
  - Chest discomfort [Unknown]
  - Infusion related reaction [Unknown]

NARRATIVE: CASE EVENT DATE: 20161215
